FAERS Safety Report 5899309-4 (Version None)
Quarter: 2008Q3

REPORT INFORMATION
  Report Type: 
  Country: None (occurrence: None)
  Receive Date: 20080909
  Receipt Date: 20071009
  Transmission Date: 20090109
  Serious: Yes (Other)
  Sender: FDA-Public Use
  Company Number: US-WYE-H00636207

PATIENT
  Age: 45 Year
  Sex: Female

DRUGS (1)
  1. ADVIL [Suspect]
     Indication: ANALGESIA
     Dosage: 2 CAPSULES AS NEEDED, ORAL
     Route: 048
     Dates: start: 20071001, end: 20071001

REACTIONS (2)
  - COLD SWEAT [None]
  - HYPERHIDROSIS [None]
